FAERS Safety Report 8152632 (Version 4)
Quarter: 2013Q1

REPORT INFORMATION
  Report Type: Spontaneous
  Country: US (occurrence: US)
  Receive Date: 20110922
  Receipt Date: 20130220
  Transmission Date: 20140127
  Serious: No
  Sender: FDA-Public Use
  Company Number: US-ASTRAZENECA-2011SE15742

PATIENT
  Age: 76 Year
  Sex: Female

DRUGS (6)
  1. SYMBICORT PMDI [Suspect]
     Route: 055
  2. NEXIUM [Suspect]
     Route: 048
     Dates: start: 2009
  3. SEROQUEL [Suspect]
     Indication: BIPOLAR DISORDER
     Route: 048
     Dates: start: 2009
  4. EFFEXOR [Concomitant]
  5. AMBIEN [Concomitant]
  6. NYQUIL [Concomitant]

REACTIONS (8)
  - Hiatus hernia [Unknown]
  - Gastrooesophageal reflux disease [Unknown]
  - Blood pressure increased [Unknown]
  - Therapeutic response unexpected [Unknown]
  - Insomnia [Unknown]
  - Drug ineffective [Unknown]
  - Bipolar disorder [Unknown]
  - Intentional drug misuse [Unknown]
